FAERS Safety Report 5594043-2 (Version None)
Quarter: 2008Q1

REPORT INFORMATION
  Report Type: 
  Country: None (occurrence: None)
  Receive Date: 20080116
  Receipt Date: 20080114
  Transmission Date: 20080703
  Serious: Yes (Hospitalization)
  Sender: FDA-Public Use
  Company Number: AU-MERCK-0801AUS00085

PATIENT
  Age: 85 Year
  Sex: Male

DRUGS (5)
  1. FOSAMAX [Suspect]
     Route: 048
     Dates: end: 20070101
  2. WARFARIN [Suspect]
     Indication: CARDIAC DISORDER
     Route: 048
     Dates: end: 20070101
  3. WARFARIN [Suspect]
     Indication: PERIPHERAL VASCULAR DISORDER
     Route: 048
     Dates: end: 20070101
  4. ATORVASTATIN CALCIUM [Concomitant]
     Route: 065
  5. INSULIN [Concomitant]
     Indication: DIABETES MELLITUS
     Route: 065

REACTIONS (1)
  - GASTRIC HAEMORRHAGE [None]
